FAERS Safety Report 9624201 (Version 1)
Quarter: 2013Q4

REPORT INFORMATION
  Report Type: Spontaneous
  Country: FR (occurrence: FR)
  Receive Date: 20131015
  Receipt Date: 20131015
  Transmission Date: 20140711
  Serious: Yes (Hospitalization)
  Sender: FDA-Public Use
  Company Number: FR-PFIZER INC-2013293412

PATIENT
  Age: 84 Year
  Sex: Female

DRUGS (14)
  1. INIPOMP [Suspect]
     Dosage: 20 MG, 1X/DAY
     Route: 048
     Dates: end: 20130828
  2. ORBENINE [Suspect]
     Dosage: 1 G, 3X/DAY
     Route: 042
     Dates: start: 20130824
  3. ORBENINE [Suspect]
     Dosage: 2 G, Q6HR
     Route: 042
     Dates: end: 20130828
  4. RISPERDAL [Suspect]
     Dosage: 2 G, Q6HR
     Route: 048
     Dates: start: 20130724, end: 20130828
  5. DEPAKOTE [Suspect]
     Dosage: 250 MG, 2X/DAY
     Route: 048
     Dates: end: 20130828
  6. FEMARA [Concomitant]
     Dosage: UNK
  7. LEVOTHYROX [Concomitant]
     Dosage: UNK
  8. TAHOR [Concomitant]
     Dosage: 10 MG, UNK
  9. AMAREL [Concomitant]
     Dosage: UNK
  10. PREVISCAN [Concomitant]
     Dosage: UNK
  11. SERESTA [Concomitant]
     Dosage: UNK
  12. ANAFRANIL [Concomitant]
     Dosage: UNK
  13. SPECIAFOLDINE [Concomitant]
     Dosage: UNK
  14. ATARAX [Concomitant]
     Dosage: UNK

REACTIONS (3)
  - Renal failure acute [Recovering/Resolving]
  - Urinary retention [Recovered/Resolved]
  - Somnolence [Recovered/Resolved]
